FAERS Safety Report 21188282 (Version 1)
Quarter: 2022Q3

REPORT INFORMATION
  Report Type: Spontaneous
  Country: US (occurrence: US)
  Receive Date: 20220809
  Receipt Date: 20220809
  Transmission Date: 20221027
  Serious: No
  Sender: FDA-Public Use
  Company Number: US-APOTEX-2022AP007854

PATIENT
  Age: 2 Month
  Sex: Male

DRUGS (1)
  1. SIROLIMUS [Suspect]
     Active Substance: SIROLIMUS
     Indication: Product used for unknown indication
     Dosage: 0.12 MILLILITER EVERY DAY BY MOUTH, POSSIBLY TWICE A DAY
     Route: 048

REACTIONS (3)
  - Syringe issue [Unknown]
  - Off label use [Unknown]
  - Wrong technique in product usage process [Unknown]
